FAERS Safety Report 9826126 (Version 1)
Quarter: 2013Q4

REPORT INFORMATION
  Report Type: Spontaneous
  Country: US (occurrence: None)
  Receive Date: 20131028
  Receipt Date: 20131028
  Transmission Date: 20140711
  Serious: Yes (Other)
  Sender: FDA-Public Use
  Company Number: 2013US002311

PATIENT
  Age: 63 Year
  Sex: Female
  Weight: 65 kg

DRUGS (13)
  1. ICLUSIG (PONATINIB) TABLET, 45 MG [Suspect]
     Indication: ACUTE MYELOID LEUKAEMIA (IN REMISSION)
     Dosage: 45 MG, QD, ORAL
     Route: 048
     Dates: start: 20130211, end: 20130412
  2. VINCRISTINE (VINCRISTINE) [Concomitant]
  3. PREDNISONE (PREDNISONE) [Concomitant]
  4. METHOTREXATE (METHOTREXATE) [Concomitant]
  5. MERCAPTOPURINE (MERCAPTOPURINE) [Concomitant]
  6. ATENOLOL (ATENOLOL) [Concomitant]
  7. LEVOTHYROXINE (LEVOTHYROXINE) [Concomitant]
  8. LASIX (FUROSEMIDE) [Concomitant]
  9. KCI (KCI) [Concomitant]
  10. MULTIVITAMIN (VITAMINS NOS) [Concomitant]
  11. CALCIUM SUPPLEMENT (CALCIUM) [Concomitant]
  12. ATIVAN (LORAZEPAM) [Concomitant]
  13. GABAPENTIN (GABAPENTIN) [Concomitant]

REACTIONS (3)
  - Alanine aminotransferase increased [None]
  - Gastrooesophageal reflux disease [None]
  - Neuropathy peripheral [None]
